FAERS Safety Report 5781694-5 (Version None)
Quarter: 2008Q2

REPORT INFORMATION
  Report Type: 
  Country: None (occurrence: None)
  Receive Date: 20080623
  Receipt Date: 20070806
  Transmission Date: 20081010
  Serious: No
  Sender: FDA-Public Use
  Company Number: US-ASTRAZENECA-2007UW18910

PATIENT
  Age: 50 Year
  Sex: Female
  Weight: 60.3 kg

DRUGS (2)
  1. RHINOCORT [Suspect]
     Indication: NASAL CONGESTION
     Route: 045
     Dates: start: 20070801
  2. ANTI-SEIZURE MEDICATION [Concomitant]

REACTIONS (3)
  - EAR DISCOMFORT [None]
  - EPISTAXIS [None]
  - SINUS CONGESTION [None]
